FAERS Safety Report 24572396 (Version 1)
Quarter: 2024Q4

REPORT INFORMATION
  Report Type: Spontaneous
  Country: US (occurrence: None)
  Receive Date: 20241101
  Receipt Date: 20241101
  Transmission Date: 20250115
  Serious: Yes (Hospitalization)
  Sender: Public
  Company Number: None

PATIENT
  Sex: Male

DRUGS (10)
  1. TEZSPIRE [Suspect]
     Active Substance: TEZEPELUMAB-EKKO
     Indication: Asthma
     Route: 058
     Dates: start: 20240326
  2. ASPIRIN LOW TAB 81 MG EC [Concomitant]
  3. KLONOPIN TAB 0.5MG [Concomitant]
  4. METOPROL sue TAB 25MG ER [Concomitant]
  5. MYOVIEW KIT 30ML [Concomitant]
  6. PLAVIX [Concomitant]
     Active Substance: CLOPIDOGREL BISULFATE
  7. PREVACID [Concomitant]
     Active Substance: LANSOPRAZOLE
  8. SEROQUEL [Concomitant]
     Active Substance: QUETIAPINE FUMARATE
  9. SEROQUEL [Concomitant]
     Active Substance: QUETIAPINE FUMARATE
  10. TESTOST GYP INJ 200MG/ML [Concomitant]

REACTIONS (2)
  - Infection [None]
  - Impaired quality of life [None]
